FAERS Safety Report 5124539-9 (Version None)
Quarter: 2006Q3

REPORT INFORMATION
  Report Type: 
  Country: None (occurrence: None)
  Receive Date: 20060821
  Receipt Date: 20060719
  Transmission Date: 20061208
  Serious: No
  Sender: FDA-Public Use
  Company Number: TPA2006A01162

PATIENT
  Age: 50 Year
  Sex: Male
  Weight: 102.5129 kg

DRUGS (2)
  1. ROZEREM [Suspect]
     Indication: INSOMNIA
     Dosage: 8 MG, QHS, PER ORAL
     Route: 048
     Dates: start: 20060718
  2. DIOVAN (VALSARTAN) (80 MILLIGRAM) [Concomitant]

REACTIONS (1)
  - SOMNOLENCE [None]
